FAERS Safety Report 22779537 (Version 2)
Quarter: 2024Q1

REPORT INFORMATION
  Report Type: Spontaneous
  Country: US (occurrence: US)
  Receive Date: 20230802
  Receipt Date: 20240301
  Transmission Date: 20240410
  Serious: Yes (Life-Threatening, Other)
  Sender: FDA-Public Use
  Company Number: US-GILEAD-2023-0638844

PATIENT
  Age: 81 Year
  Sex: Male
  Weight: 170.4 kg

DRUGS (19)
  1. YESCARTA [Suspect]
     Active Substance: AXICABTAGENE CILOLEUCEL
     Indication: Follicular lymphoma
     Dosage: UNK
     Route: 065
     Dates: start: 20220606, end: 20220606
  2. DIGOXIN [Concomitant]
     Active Substance: DIGOXIN
  3. METOPROLOL [Concomitant]
     Active Substance: METOPROLOL
  4. RESTORIL [Concomitant]
     Active Substance: TEMAZEPAM
  5. MICARDIS [Concomitant]
     Active Substance: TELMISARTAN
  6. ACYCLOVIR [Concomitant]
     Active Substance: ACYCLOVIR
  7. ZOLOFT [Concomitant]
     Active Substance: SERTRALINE HYDROCHLORIDE
  8. ATORVASTATIN [Concomitant]
     Active Substance: ATORVASTATIN
  9. ELIQUIS [Concomitant]
     Active Substance: APIXABAN
  10. MARINOL [Concomitant]
     Active Substance: DRONABINOL
  11. POTASSIUM CHLORIDE [Concomitant]
     Active Substance: POTASSIUM CHLORIDE
  12. DESVENLAFAXINE [Concomitant]
     Active Substance: DESVENLAFAXINE
  13. LEVETIRACETAM [Concomitant]
     Active Substance: LEVETIRACETAM
  14. MIRABEGRON [Concomitant]
     Active Substance: MIRABEGRON
  15. TEMAZEPAM [Concomitant]
     Active Substance: TEMAZEPAM
  16. TERAZOSIN [Concomitant]
     Active Substance: TERAZOSIN HYDROCHLORIDE
  17. ONDANSETRON [Concomitant]
     Active Substance: ONDANSETRON
  18. AMLODIPINE [Concomitant]
     Active Substance: AMLODIPINE BESYLATE
  19. DULOXETINE [Concomitant]
     Active Substance: DULOXETINE

REACTIONS (1)
  - Transitional cell carcinoma [Not Recovered/Not Resolved]

NARRATIVE: CASE EVENT DATE: 20230227
